FAERS Safety Report 21607255 (Version 1)
Quarter: 2022Q4

REPORT INFORMATION
  Report Type: Spontaneous
  Country: US (occurrence: US)
  Receive Date: 20221117
  Receipt Date: 20221117
  Transmission Date: 20230113
  Serious: Yes (Hospitalization, Other)
  Sender: FDA-Public Use
  Company Number: US-SA-SAC20221111001649

PATIENT
  Age: 79 Year
  Sex: Male
  Weight: 99.3 kg

DRUGS (12)
  1. FLOMAX [Suspect]
     Active Substance: TAMSULOSIN HYDROCHLORIDE
     Indication: Benign prostatic hyperplasia
     Dosage: 0.4 MG, DAILY
     Route: 048
     Dates: start: 2012
  2. HYDROXYZINE [Suspect]
     Active Substance: HYDROXYZINE HYDROCHLORIDE
     Indication: Insomnia
     Dosage: 10 MG, QD
     Route: 048
     Dates: start: 202203
  3. TOZINAMERAN [Suspect]
     Active Substance: TOZINAMERAN
     Indication: COVID-19 immunisation
     Dosage: UNK
     Route: 030
     Dates: start: 20211102
  4. LOSARTAN [Suspect]
     Active Substance: LOSARTAN
     Indication: Atrial fibrillation
     Dosage: 25 MG, QD
     Route: 048
     Dates: start: 2016
  5. DILTIAZEM [Suspect]
     Active Substance: DILTIAZEM
     Indication: Atrial fibrillation
     Dosage: 120 MG, QD
     Route: 048
     Dates: start: 2016
  6. AMIODARONE [Suspect]
     Active Substance: AMIODARONE
     Indication: Atrial fibrillation
     Dosage: UNK
     Dates: start: 2021
  7. ZYRTEC [Concomitant]
     Active Substance: CETIRIZINE HYDROCHLORIDE
     Indication: Seasonal allergy
     Dosage: UNK
     Dates: start: 2017
  8. COVID-19 VACCINE [Concomitant]
     Dosage: UNK
     Route: 030
     Dates: start: 20211102
  9. BETAINE\FOLIC ACID\METHYLCOBALAMIN\PYRIDOXINE\RIBOFLAVIN [Concomitant]
     Active Substance: BETAINE\FOLIC ACID\METHYLCOBALAMIN\PYRIDOXINE\RIBOFLAVIN
     Indication: Supplementation therapy
     Dosage: UNK
     Dates: start: 2014
  10. ELIQUIS [Concomitant]
     Active Substance: APIXABAN
     Indication: Atrial fibrillation
     Dosage: UNK
     Dates: start: 202104
  11. COENZYME Q10 [Concomitant]
     Active Substance: DIETARY SUPPLEMENT\UBIDECARENONE
     Indication: Supplementation therapy
     Dosage: UNK
     Dates: start: 2014
  12. PULMICORT TURBUHALER [Concomitant]
     Active Substance: BUDESONIDE
     Indication: Chronic obstructive pulmonary disease
     Dosage: UNK
     Dates: start: 2021

REACTIONS (4)
  - Fall [Unknown]
  - Lower limb fracture [Unknown]
  - Crush injury [Unknown]
  - Dizziness [Unknown]

NARRATIVE: CASE EVENT DATE: 20220411
